FAERS Safety Report 26105610 (Version 2)
Quarter: 2025Q4

REPORT INFORMATION
  Report Type: Spontaneous
  Country: US (occurrence: US)
  Receive Date: 20251201
  Receipt Date: 20251224
  Transmission Date: 20260118
  Serious: No
  Sender: BIOVITRUM
  Company Number: US-BIOVITRUM-2025-US-016172

PATIENT
  Age: 85 Year
  Sex: Female

DRUGS (1)
  1. VONJO [Suspect]
     Active Substance: PACRITINIB
     Indication: Myelofibrosis
     Dosage: TAKE 1 CAPSULE TWICE DAILY
     Route: 048
     Dates: start: 20251101

REACTIONS (3)
  - Depressed mood [Not Recovered/Not Resolved]
  - Asthenia [Unknown]
  - Off label use [Not Recovered/Not Resolved]

NARRATIVE: CASE EVENT DATE: 20251101
